FAERS Safety Report 7881920-2 (Version None)
Quarter: 2011Q4

REPORT INFORMATION
  Report Type: 
  Country: None (occurrence: None)
  Receive Date: 20111101
  Receipt Date: 20110604
  Transmission Date: 20120403
  Serious: No
  Sender: FDA-Public Use
  Company Number: US-AMGEN-USASP2011003054

PATIENT
  Age: 48 Year
  Sex: Female

DRUGS (2)
  1. ENBREL [Suspect]
     Indication: SJOGREN'S SYNDROME
  2. ENBREL [Suspect]
     Indication: RHEUMATOID ARTHRITIS
     Dosage: 50 MG, QWK
     Dates: start: 20101101

REACTIONS (7)
  - RHEUMATOID ARTHRITIS [None]
  - BONE OPERATION [None]
  - TOOTH EXTRACTION [None]
  - INJECTION SITE PAIN [None]
  - TOOTHACHE [None]
  - ECZEMA [None]
  - PAIN IN JAW [None]
